FAERS Safety Report 11846159 (Version 1)
Quarter: 2015Q4

REPORT INFORMATION
  Report Type: Spontaneous
  Country: US (occurrence: US)
  Receive Date: 20151217
  Receipt Date: 20151217
  Transmission Date: 20160305
  Serious: Yes (Other)
  Sender: FDA-Public Use
  Company Number: US-HORIZON-PRE-0236-2015

PATIENT
  Age: 29 Year
  Sex: Female

DRUGS (3)
  1. PREDNISONE. [Suspect]
     Active Substance: PREDNISONE
     Indication: ASTHMA
     Route: 048
  2. NEFAZODONE [Suspect]
     Active Substance: NEFAZODONE
     Dosage: 50 MG
  3. SALMETEROL/FLUTICASONE PROPIONATE 50/500UG [Suspect]
     Active Substance: FLUTICASONE PROPIONATE\SALMETEROL XINAFOATE
     Dosage: 50/500 ?G ONE PUFF TWICE DAILY, REDUCED TO 50/100 ?G ONE PUFF TWICE DAILY

REACTIONS (2)
  - Hypogammaglobulinaemia [Recovered/Resolved]
  - Adrenal suppression [Recovered/Resolved]
